FAERS Safety Report 6619116-4 (Version None)
Quarter: 2010Q1

REPORT INFORMATION
  Report Type: 
  Country: None (occurrence: None)
  Receive Date: 20100308
  Receipt Date: 20100224
  Transmission Date: 20100710
  Serious: Yes (Hospitalization, Disabling, Other)
  Sender: FDA-Public Use
  Company Number: JP-PFIZER INC-2010012204

PATIENT
  Age: 72 Year
  Sex: Male
  Weight: 55 kg

DRUGS (9)
  1. CELECOX [Suspect]
     Indication: LUMBAR SPINAL STENOSIS
     Dosage: 100 MG, BID
     Route: 048
     Dates: start: 20100112, end: 20100118
  2. PROSTAL [Suspect]
     Indication: PROSTATE CANCER
     Dosage: 50 MG, 2X/DAY
     Route: 048
     Dates: start: 20090904, end: 20100119
  3. METHYCOBAL [Concomitant]
     Dosage: UNK
     Dates: start: 20100112, end: 20100118
  4. HARNAL [Concomitant]
     Dosage: UNK
  5. AMLODIPINE [Concomitant]
     Dosage: UNK
  6. DIOVAN HCT [Concomitant]
     Dosage: UNK
  7. ROCEPHIN [Concomitant]
     Dosage: UNK
     Dates: start: 20100118, end: 20100121
  8. STRONG NEO-MINOPHAGEN C [Concomitant]
     Dosage: UNK
     Dates: start: 20100118, end: 20100121
  9. CRAVIT [Concomitant]
     Dosage: UNK
     Dates: start: 20100115, end: 20100118

REACTIONS (3)
  - ABDOMINAL PAIN [None]
  - ATRIAL THROMBOSIS [None]
  - RENAL INFARCT [None]
